FAERS Safety Report 7513346-5 (Version None)
Quarter: 2011Q2

REPORT INFORMATION
  Report Type: 
  Country: None (occurrence: None)
  Receive Date: 20110531
  Receipt Date: 20110527
  Transmission Date: 20111010
  Serious: Yes (Death, Hospitalization, Other)
  Sender: FDA-Public Use
  Company Number: JP-ABBOTT-11P-087-0718807-00

PATIENT
  Sex: Female

DRUGS (6)
  1. SULFAMETHOXAZOLE AND TRIMETHOPRIM [Concomitant]
     Indication: INFECTION PROPHYLAXIS
  2. HUMIRA [Suspect]
     Indication: RHEUMATOID ARTHRITIS
     Route: 058
     Dates: start: 20090930, end: 20101210
  3. ALENDRONATE SODIUM [Concomitant]
     Indication: PROPHYLAXIS
     Dosage: 35MG/W
     Dates: start: 20100426
  4. ZOLPIDEM TARTRATE [Concomitant]
     Indication: PROPHYLAXIS
     Dates: end: 20100426
  5. MIZORIBINE [Concomitant]
     Indication: RHEUMATOID ARTHRITIS
     Dates: end: 20110303
  6. PREDNISOLONE [Concomitant]
     Indication: RHEUMATOID ARTHRITIS
     Route: 048
     Dates: start: 20100426

REACTIONS (9)
  - DECREASED APPETITE [None]
  - GASTROINTESTINAL AMYLOIDOSIS [None]
  - CARDIAC FAILURE [None]
  - HYPOPHAGIA [None]
  - CARDIAC ARREST [None]
  - BLOOD ALBUMIN DECREASED [None]
  - CIRCULATORY COLLAPSE [None]
  - PROTEIN TOTAL DECREASED [None]
  - RHEUMATOID ARTHRITIS [None]
